FAERS Safety Report 9704009 (Version 1)
Quarter: 2013Q4

REPORT INFORMATION
  Report Type: Spontaneous
  Country: US (occurrence: US)
  Receive Date: 20131122
  Receipt Date: 20131122
  Transmission Date: 20140711
  Serious: Yes (Hospitalization)
  Sender: FDA-Public Use
  Company Number: US-BAYER-2013-141385

PATIENT
  Age: 37 Year
  Sex: Female
  Weight: 100 kg

DRUGS (26)
  1. YASMIN [Suspect]
  2. OCELLA [Suspect]
  3. TRAZODONE [Concomitant]
     Dosage: 150 MG, UNK
  4. LEXAPRO [Concomitant]
     Dosage: 20 MG, UNK
  5. CLONAZEPAM [Concomitant]
     Dosage: 2 MG, UNK
  6. PRISTIQ [Concomitant]
     Dosage: 50 MG, UNK
  7. LIOTHYRONINE SODIUM [Concomitant]
     Dosage: 25 MCG
  8. XANAX [Concomitant]
     Dosage: 1 MG, UNK
  9. DIAZEPAM [Concomitant]
     Dosage: 5MG MR AND NOON,10MG BEDTIME
  10. NEURONTIN [Concomitant]
     Dosage: 600 MG, UNK
  11. EFEXOR [Concomitant]
     Dosage: 75 MG, UNK
  12. TRIAZOLAM [Concomitant]
     Dosage: 0.25 MG, UNK
  13. MELATONIN [Concomitant]
     Dosage: DAILY AT BEDTIME
  14. BIOTIN [Concomitant]
  15. HYDROCODONE/ACETAMINOPHEN [Concomitant]
  16. CALCIUM CITRATE [Concomitant]
  17. MULTIVITAMIN [Concomitant]
  18. OMEGA 3 [Concomitant]
  19. GABAPENTIN [Concomitant]
  20. ALPRAZOLAM [Concomitant]
  21. VENLAFAXINE [Concomitant]
  22. MAGNESIUM [Concomitant]
  23. ZOFRAN [Concomitant]
     Route: 042
  24. MORPHINE [Concomitant]
     Route: 042
  25. EFFEXOR [Concomitant]
  26. LEVOTHYROXINE [Concomitant]

REACTIONS (1)
  - Pulmonary embolism [Recovered/Resolved]
